FAERS Safety Report 23296765 (Version 2)
Quarter: 2023Q4

REPORT INFORMATION
  Report Type: Spontaneous
  Country: US (occurrence: US)
  Receive Date: 20231214
  Receipt Date: 20231229
  Transmission Date: 20240110
  Serious: Yes (Life-Threatening, Hospitalization, Other)
  Sender: FDA-Public Use
  Company Number: US-PFIZER INC-PV202300199015

PATIENT
  Age: 13 Year
  Sex: Male

DRUGS (1)
  1. THROMBIN [Suspect]
     Active Substance: THROMBIN
     Indication: Arterial haemorrhage
     Dosage: TWO CC OF THROMBIN (5000 U/CC) WAS INJECTED THROUGH THE BIOPSY CANNULA

REACTIONS (1)
  - Cerebellar infarction [Unknown]
